FAERS Safety Report 10764236 (Version 1)
Quarter: 2015Q1

REPORT INFORMATION
  Report Type: Spontaneous
  Country: KP (occurrence: KP)
  Receive Date: 20150205
  Receipt Date: 20150205
  Transmission Date: 20150721
  Serious: Yes (Other)
  Sender: FDA-Public Use
  Company Number: KP-CIPLA LTD.-2015KP00828

PATIENT

DRUGS (2)
  1. TENOFOVIR DISOPROXIL FUMARATE [Suspect]
     Active Substance: TENOFOVIR DISOPROXIL FUMARATE
     Indication: HEPATITIS B
     Dosage: 300 MG ONCE DAILY FOR 48 WEEKS
  2. NUCLEOS(T)IDE ANALOGUE [Concomitant]
     Indication: HEPATITIS B

REACTIONS (1)
  - Hepatocellular carcinoma [Unknown]
